FAERS Safety Report 25367329 (Version 3)
Quarter: 2025Q2

REPORT INFORMATION
  Report Type: Spontaneous
  Country: BE (occurrence: BE)
  Receive Date: 20250528
  Receipt Date: 20250624
  Transmission Date: 20250716
  Serious: Yes (Other)
  Sender: Unknown Manufacturer
  Company Number: BE-MIRUM PHARMACEUTICALS, INC.-BE-MIR-25-00285

PATIENT

DRUGS (9)
  1. LIVMARLI [Suspect]
     Active Substance: MARALIXIBAT CHLORIDE
     Indication: Cholestasis of pregnancy
     Dosage: 0.6 MILLILITER (5.7 MG), QD
     Route: 048
     Dates: start: 20241217, end: 20241218
  2. LIVMARLI [Suspect]
     Active Substance: MARALIXIBAT CHLORIDE
     Dosage: 1.5 MILLILITER, QD
     Route: 048
     Dates: start: 20241219, end: 20241222
  3. LIVMARLI [Suspect]
     Active Substance: MARALIXIBAT CHLORIDE
     Dosage: 3.0 MILLILITER
     Route: 048
     Dates: start: 20241223, end: 20241226
  4. URSODIOL [Concomitant]
     Active Substance: URSODIOL
     Indication: Bile acids increased
     Dosage: 500 MILLIGRAM, TID (ADJUSTED FOR WEIGHT
     Route: 065
  5. URSODIOL [Concomitant]
     Active Substance: URSODIOL
     Indication: Transaminases increased
  6. URSODIOL [Concomitant]
     Active Substance: URSODIOL
     Indication: Blood bilirubin increased
  7. RIFAMPIN [Concomitant]
     Active Substance: RIFAMPIN
     Indication: Bile acids increased
     Dosage: 300 MILLIGRAM, QD
     Route: 065
  8. RIFAMPIN [Concomitant]
     Active Substance: RIFAMPIN
     Indication: Transaminases increased
  9. RIFAMPIN [Concomitant]
     Active Substance: RIFAMPIN
     Indication: Blood bilirubin increased

REACTIONS (3)
  - Bile acids increased [Recovered/Resolved]
  - Premature delivery [Unknown]
  - Maternal exposure during pregnancy [Unknown]

NARRATIVE: CASE EVENT DATE: 20241217
